FAERS Safety Report 9646559 (Version 2)
Quarter: 2013Q4

REPORT INFORMATION
  Report Type: Report from Study
  Country: US (occurrence: US)
  Receive Date: 20131025
  Receipt Date: 20131025
  Transmission Date: 20140711
  Serious: Yes (Death, Hospitalization, Other)
  Sender: FDA-Public Use
  Company Number: US-ABBVIE-13P-163-1158452-00

PATIENT
  Sex: Male
  Weight: 77.18 kg

DRUGS (9)
  1. HUMIRA [Suspect]
     Indication: RHEUMATOID ARTHRITIS
     Dates: start: 2008, end: 2012
  2. HUMIRA [Suspect]
     Dates: start: 2012, end: 20131005
  3. CALCIUM [Concomitant]
     Indication: MINERAL SUPPLEMENTATION
  4. TAMSULOSIN [Concomitant]
     Indication: PROSTATIC DISORDER
  5. SIMVASTATIN [Concomitant]
     Indication: BLOOD CHOLESTEROL INCREASED
  6. LEVOTHYROXINE [Concomitant]
     Indication: HYPOTHYROIDISM
  7. CLONAZEPAM [Concomitant]
     Indication: ANXIETY
  8. MORPHINE [Concomitant]
     Indication: DYSPNOEA
  9. FORTEO [Concomitant]
     Indication: PRODUCT USED FOR UNKNOWN INDICATION
     Dates: start: 2012, end: 2013

REACTIONS (6)
  - Urinary tract infection [Fatal]
  - Hip fracture [Unknown]
  - Cerebrovascular accident [Unknown]
  - Speech disorder [Not Recovered/Not Resolved]
  - Gait disturbance [Not Recovered/Not Resolved]
  - Incorrect dose administered [Not Recovered/Not Resolved]
